FAERS Safety Report 15308455 (Version 1)
Quarter: 2018Q3

REPORT INFORMATION
  Report Type: Spontaneous
  Country: US (occurrence: US)
  Receive Date: 20180822
  Receipt Date: 20180822
  Transmission Date: 20181010
  Serious: Yes (Other)
  Sender: FDA-Public Use
  Company Number: US-GLAXOSMITHKLINE-US2018149682

PATIENT
  Age: 82 Year
  Sex: Female

DRUGS (2)
  1. SENSODYNE EXTRA WHITENING [Suspect]
     Active Substance: POTASSIUM NITRATE\SODIUM FLUORIDE
     Indication: LOOSE TOOTH
  2. SENSODYNE EXTRA WHITENING [Suspect]
     Active Substance: POTASSIUM NITRATE\SODIUM FLUORIDE
     Indication: SENSITIVITY OF TEETH
     Dosage: UNK

REACTIONS (6)
  - Cerebrovascular accident [Unknown]
  - Malaise [Unknown]
  - Dizziness [Unknown]
  - Product use in unapproved indication [Unknown]
  - Loss of consciousness [Unknown]
  - Accidental exposure to product [Unknown]
